FAERS Safety Report 8520142-9 (Version None)
Quarter: 2012Q3

REPORT INFORMATION
  Report Type: 
  Country: None (occurrence: None)
  Receive Date: 20120706
  Receipt Date: 20120620
  Transmission Date: 20120928
  Serious: Yes (Death, Hospitalization)
  Sender: FDA-Public Use
  Company Number: 12-F-US-00099

PATIENT
  Age: 49 Year
  Sex: Male
  Weight: 58.5 kg

DRUGS (8)
  1. DEXAMETHASONE SODIUM PHOSPHATE [Concomitant]
  2. ANTIEMETICS (ANTIEMETICS) [Concomitant]
  3. PAIN MEDICATION (PAIN MEDICATION) [Concomitant]
  4. OXALIPLATIN [Suspect]
     Indication: COLON CANCER
     Dosage: 147 MG, Q 14,  147 MG, Q 14 DAYS, WITH FUSILEV, INTRAVENOUS
     Route: 042
     Dates: start: 20120321
  5. ALOXI [Concomitant]
  6. FUSILEV [Suspect]
     Indication: COLON CANCER
     Dosage: 690 MG, Q 14, 590 MG, Q14 DAYS, WITH OXALIPLATIN, INTRAVENOUS
     Route: 042
     Dates: start: 20120321
  7. FLUOROURACIL [Suspect]
     Indication: COLON CANCER
     Dosage: 4000 MG FOR 48 HRS, ON DAY 1, INTRAVENOUS, 690 MG ON DAY 1, INTRAVENOUS
     Route: 042
     Dates: start: 20120321
  8. FLUOROURACIL [Suspect]
     Indication: COLON CANCER
     Dosage: 4000 MG FOR 48 HRS, ON DAY 1, INTRAVENOUS, 690 MG ON DAY 1, INTRAVENOUS
     Route: 042
     Dates: start: 20120321

REACTIONS (1)
  - HYPOGLYCAEMIC COMA [None]
